FAERS Safety Report 9475819 (Version 1)
Quarter: 2013Q3

REPORT INFORMATION
  Report Type: Spontaneous
  Country: US (occurrence: US)
  Receive Date: 20130826
  Receipt Date: 20130826
  Transmission Date: 20140515
  Serious: No
  Sender: FDA-Public Use
  Company Number: US-PFIZER INC-2013243362

PATIENT
  Age: 90 Year
  Sex: Female
  Weight: 75.28 kg

DRUGS (2)
  1. DETROL LA [Suspect]
     Indication: HYPERTONIC BLADDER
     Dosage: 4 MG, 1X/DAY
     Route: 048
     Dates: start: 2012
  2. PROPYLTHIOURACIL [Concomitant]
     Indication: THYROID DISORDER
     Dosage: 25 MG (BY CUTTING 50MG TABLET INTO HALF), 1X/DAY

REACTIONS (1)
  - Drug ineffective [Unknown]
